FAERS Safety Report 5413405-7 (Version None)
Quarter: 2007Q3

REPORT INFORMATION
  Report Type: 
  Country: None (occurrence: None)
  Receive Date: 20070810
  Receipt Date: 20070308
  Transmission Date: 20080115
  Serious: Yes (Other)
  Sender: FDA-Public Use
  Company Number: 2007-02415

PATIENT
  Age: 69 Year
  Sex: Female
  Weight: 50 kg

DRUGS (3)
  1. VELCADE [Suspect]
     Indication: MULTIPLE MYELOMA
     Dosage: 1.00 MG/M2, INTRAVENOUS; 1.40 MG, INTRAVENOUS
     Route: 042
     Dates: start: 20070116, end: 20070213
  2. VELCADE [Suspect]
     Indication: MULTIPLE MYELOMA
     Dosage: 1.00 MG/M2, INTRAVENOUS; 1.40 MG, INTRAVENOUS
     Route: 042
     Dates: start: 20070306, end: 20070306
  3. DECADRON [Concomitant]

REACTIONS (1)
  - NEUROGENIC BLADDER [None]
